FAERS Safety Report 10712871 (Version 1)
Quarter: 2015Q1

REPORT INFORMATION
  Report Type: Spontaneous
  Country: GB (occurrence: None)
  Receive Date: 20150114
  Receipt Date: 20150114
  Transmission Date: 20150721
  Serious: Yes (Life-Threatening)
  Sender: FDA-Public Use
  Company Number: None

PATIENT
  Age: 58 Year
  Sex: Female
  Weight: 87 kg

DRUGS (2)
  1. STREPSILS (AMYLMETACRESOL\DICHLOROBENZYL ALCOHOL) [Suspect]
     Active Substance: AMYLMETACRESOL\DICHLOROBENZYL ALCOHOL
     Indication: OROPHARYNGEAL PAIN
  2. STREPSILS (AMYLMETACRESOL\DICHLOROBENZYL ALCOHOL) [Suspect]
     Active Substance: AMYLMETACRESOL\DICHLOROBENZYL ALCOHOL
     Indication: NASAL CONGESTION

REACTIONS (8)
  - Dizziness [None]
  - Dyspnoea [None]
  - Malaise [None]
  - Rash erythematous [None]
  - Mass [None]
  - Asthenia [None]
  - Chest discomfort [None]
  - Rash pruritic [None]

NARRATIVE: CASE EVENT DATE: 20141020
